FAERS Safety Report 4359603-5 (Version None)
Quarter: 2004Q2

REPORT INFORMATION
  Report Type: 
  Country: None (occurrence: None)
  Receive Date: 20040512
  Receipt Date: 20040427
  Transmission Date: 20050107
  Serious: No
  Sender: FDA-Public Use
  Company Number: FR_040303758

PATIENT
  Age: 30 Year
  Sex: Male

DRUGS (3)
  1. ZYPREXA [Suspect]
     Dosage: 10 MG/1 DAY
     Dates: start: 20040315
  2. HALDOL [Concomitant]
  3. LEXOMIL (BROMAZEPAM) [Concomitant]

REACTIONS (1)
  - EPISTAXIS [None]
